FAERS Safety Report 15588810 (Version 5)
Quarter: 2019Q1

REPORT INFORMATION
  Report Type: Spontaneous
  Country: MY (occurrence: MY)
  Receive Date: 20181106
  Receipt Date: 20190212
  Transmission Date: 20190417
  Serious: Yes (Death, Other)
  Sender: FDA-Public Use
  Company Number: MY-ASTRAZENECA-2018SF42973

PATIENT
  Age: 14609 Day
  Sex: Male

DRUGS (3)
  1. IRESSA [Suspect]
     Active Substance: GEFITINIB
     Indication: NON-SMALL CELL LUNG CANCER
     Dosage: 250.0MG UNKNOWN
     Route: 048
     Dates: start: 20180428, end: 20181027
  2. TAGRISSO [Suspect]
     Active Substance: OSIMERTINIB
     Indication: NON-SMALL CELL LUNG CANCER
     Dosage: 80.0MG UNKNOWN
     Route: 048
     Dates: start: 20181101, end: 20181122
  3. TAGRISSO [Suspect]
     Active Substance: OSIMERTINIB
     Indication: NON-SMALL CELL LUNG CANCER
     Dosage: 80.0MG UNKNOWN
     Route: 048
     Dates: start: 20181101, end: 20181122

REACTIONS (10)
  - Sepsis [Fatal]
  - Drug reaction with eosinophilia and systemic symptoms [Fatal]
  - White blood cell count increased [Unknown]
  - Metastases to central nervous system [Fatal]
  - Malignant neoplasm progression [Unknown]
  - Hepatitis [Unknown]
  - Intestinal ischaemia [Fatal]
  - Pyrexia [Unknown]
  - Skin infection [Fatal]
  - Rash [Unknown]

NARRATIVE: CASE EVENT DATE: 20181027
